FAERS Safety Report 10175668 (Version 2)
Quarter: 2014Q2

REPORT INFORMATION
  Report Type: Report from Study
  Country: US (occurrence: US)
  Receive Date: 20140516
  Receipt Date: 20140623
  Transmission Date: 20141212
  Serious: Yes (Hospitalization)
  Sender: FDA-Public Use
  Company Number: US-BIOGENIDEC-2014BI042469

PATIENT
  Age: 33 Year
  Sex: Male

DRUGS (1)
  1. TECFIDERA [Suspect]
     Indication: MULTIPLE SCLEROSIS
     Route: 048
     Dates: start: 201401, end: 201404

REACTIONS (1)
  - Dysphagia [Unknown]
